FAERS Safety Report 5403299-8 (Version None)
Quarter: 2007Q3

REPORT INFORMATION
  Report Type: 
  Country: None (occurrence: None)
  Receive Date: 20070801
  Receipt Date: 20070725
  Transmission Date: 20080115
  Serious: Yes (Hospitalization)
  Sender: FDA-Public Use
  Company Number: JP-PFIZER INC-2007061949

PATIENT
  Age: 54 Year
  Sex: Female

DRUGS (3)
  1. HYDROCORTISONE ACETATE [Suspect]
     Indication: ADRENAL INSUFFICIENCY
  2. THYROID HORMONES [Concomitant]
  3. ALL OTHER THERAPEUTIC PRODUCTS [Concomitant]

REACTIONS (2)
  - INCORRECT DOSE ADMINISTERED [None]
  - MENTAL STATUS CHANGES [None]
